FAERS Safety Report 22110374 (Version 9)
Quarter: 2023Q4

REPORT INFORMATION
  Report Type: Spontaneous
  Country: US (occurrence: US)
  Receive Date: 20230317
  Receipt Date: 20231218
  Transmission Date: 20240110
  Serious: Yes (Hospitalization)
  Sender: FDA-Public Use
  Company Number: US-PFIZER INC-202200505123

PATIENT
  Age: 66 Year
  Sex: Female

DRUGS (1)
  1. TALZENNA [Suspect]
     Active Substance: TALAZOPARIB TOSYLATE
     Indication: Breast cancer female
     Dosage: TAKE 1 CAPSULE W/ OR W/OUT FOOD
     Route: 048

REACTIONS (4)
  - Neck injury [Recovering/Resolving]
  - Neck pain [Unknown]
  - COVID-19 [Unknown]
  - Arthropathy [Unknown]

NARRATIVE: CASE EVENT DATE: 20230501
